FAERS Safety Report 6286716-3 (Version None)
Quarter: 2009Q3

REPORT INFORMATION
  Report Type: 
  Country: None (occurrence: None)
  Receive Date: 20090724
  Receipt Date: 20090713
  Transmission Date: 20100115
  Serious: Yes (Hospitalization)
  Sender: FDA-Public Use
  Company Number: 1000007650

PATIENT
  Sex: Female

DRUGS (3)
  1. CITALOPRAM HYDROBROMIDE [Suspect]
  2. SEROQUEL [Suspect]
  3. HALDOL [Suspect]

REACTIONS (2)
  - LOCKED-IN SYNDROME [None]
  - NEUROLEPTIC MALIGNANT SYNDROME [None]
